FAERS Safety Report 4716486-9 (Version None)
Quarter: 2005Q3

REPORT INFORMATION
  Report Type: 
  Country: None (occurrence: None)
  Receive Date: 20050713
  Receipt Date: 20050627
  Transmission Date: 20060218
  Serious: Yes (Death)
  Sender: FDA-Public Use
  Company Number: 215904

PATIENT
  Age: 47 Year
  Sex: Female

DRUGS (1)
  1. HERCEPTIN [Suspect]
     Indication: BREAST CANCER METASTATIC
     Dosage: 300 MG, IV DRIP
     Route: 041
     Dates: start: 20050623, end: 20050623

REACTIONS (4)
  - ABNORMAL BEHAVIOUR [None]
  - HEPATIC FAILURE [None]
  - RENAL FAILURE [None]
  - SPEECH DISORDER [None]
